FAERS Safety Report 5336692-2 (Version None)
Quarter: 2007Q3

REPORT INFORMATION
  Report Type: 
  Country: None (occurrence: None)
  Receive Date: 20070524
  Receipt Date: 20070516
  Transmission Date: 20080115
  Serious: Yes (Death, Hospitalization)
  Sender: FDA-Public Use
  Company Number: 2007BI009936

PATIENT
  Age: 66 Year
  Sex: Female

DRUGS (2)
  1. AVONEX [Suspect]
     Indication: MULTIPLE SCLEROSIS
     Dosage: 30 UG QW IM
     Route: 030
     Dates: start: 19960221, end: 20030101
  2. AVONEX [Suspect]
     Indication: MULTIPLE SCLEROSIS
     Dosage: 30 UG QW IM
     Route: 030
     Dates: start: 20030101, end: 20070101

REACTIONS (11)
  - ABDOMINAL DISTENSION [None]
  - AORTIC ANEURYSM [None]
  - ASCITES [None]
  - BLOOD PRESSURE DECREASED [None]
  - DEPRESSED LEVEL OF CONSCIOUSNESS [None]
  - DIABETIC COMA [None]
  - DIALYSIS [None]
  - GASTROINTESTINAL DISORDER [None]
  - PYREXIA [None]
  - RENAL FAILURE [None]
  - SCAR [None]
